FAERS Safety Report 6187983-7 (Version None)
Quarter: 2009Q2

REPORT INFORMATION
  Report Type: 
  Country: None (occurrence: None)
  Receive Date: 20090513
  Receipt Date: 20090511
  Transmission Date: 20091009
  Serious: No
  Sender: FDA-Public Use
  Company Number: US-B.I. PHARMACEUTICALS,INC./RIDGEFIELD-2009-BP-04526BP

PATIENT
  Age: 72 Year
  Sex: Male

DRUGS (6)
  1. FLOMAX [Suspect]
     Indication: BENIGN PROSTATIC HYPERPLASIA
     Dosage: .8MG
     Route: 048
     Dates: start: 20090319
  2. INHALERS [Concomitant]
     Indication: CHRONIC OBSTRUCTIVE PULMONARY DISEASE
  3. STOMACH MED [Concomitant]
     Indication: GASTROOESOPHAGEAL REFLUX DISEASE
  4. HIGH B/P PILLS [Concomitant]
     Indication: HYPERTENSION
  5. HEART MEDS [Concomitant]
     Indication: CARDIAC DISORDER
  6. C-PAP [Concomitant]
     Indication: SLEEP APNOEA SYNDROME

REACTIONS (4)
  - DYSURIA [None]
  - NOCTURIA [None]
  - POLLAKIURIA [None]
  - URINARY RETENTION [None]
